FAERS Safety Report 5700592-6 (Version None)
Quarter: 2008Q2

REPORT INFORMATION
  Report Type: 
  Country: None (occurrence: None)
  Receive Date: 20080410
  Receipt Date: 20080327
  Transmission Date: 20081010
  Serious: Yes (Death)
  Sender: FDA-Public Use
  Company Number: US-AMGEN-QUU271458

PATIENT
  Sex: Male

DRUGS (1)
  1. VECTIBIX [Suspect]
     Indication: COLORECTAL CANCER
     Dates: start: 20070201, end: 20070405

REACTIONS (1)
  - DEATH [None]
